FAERS Safety Report 19986098 (Version 1)
Quarter: 2021Q4

REPORT INFORMATION
  Report Type: Spontaneous
  Country: AU (occurrence: AU)
  Receive Date: 20211022
  Receipt Date: 20211022
  Transmission Date: 20220303
  Serious: Yes (Life-Threatening, Other)
  Sender: FDA-Public Use
  Company Number: AU-MYLANLABS-2021M1024101

PATIENT
  Sex: Male

DRUGS (2)
  1. ALBUTEROL SULFATE [Suspect]
     Active Substance: ALBUTEROL SULFATE
     Indication: Product used for unknown indication
     Dosage: UNK
  2. VENTOLIN [Suspect]
     Active Substance: ALBUTEROL SULFATE
     Indication: Product used for unknown indication
     Dosage: UNK

REACTIONS (8)
  - Near death experience [Unknown]
  - Dyspnoea [Unknown]
  - Product dose omission issue [Unknown]
  - Device issue [Unknown]
  - Drug ineffective [Unknown]
  - Product complaint [Unknown]
  - Wrong technique in device usage process [Unknown]
  - Overdose [Unknown]
